FAERS Safety Report 9257722 (Version 1)
Quarter: 2013Q2

REPORT INFORMATION
  Report Type: Spontaneous
  Country: US (occurrence: None)
  Receive Date: 20130424
  Receipt Date: 20130424
  Transmission Date: 20140414
  Serious: Yes (Death, Life-Threatening, Hospitalization, Disabling, Congenital Anomaly, Other)
  Sender: FDA-Public Use
  Company Number: None

PATIENT
  Age: 46 Year
  Sex: Female
  Weight: 54.43 kg

DRUGS (2)
  1. LEVAMISOLE [Suspect]
     Indication: DRUG ABUSE
  2. ERGAMISOL [Concomitant]

REACTIONS (4)
  - Rash [None]
  - Pain [None]
  - Vasculitis [None]
  - Skin graft [None]
